FAERS Safety Report 26012805 (Version 4)
Quarter: 2025Q4

REPORT INFORMATION
  Report Type: Report from Study
  Country: US (occurrence: US)
  Receive Date: 20251107
  Receipt Date: 20251222
  Transmission Date: 20260119
  Serious: No
  Sender: MALLINCKRODT
  Company Number: US-MALLINCKRODT-MNK202506803

PATIENT
  Age: 66 Year
  Sex: Male

DRUGS (4)
  1. CORTICOTROPIN [Suspect]
     Active Substance: CORTICOTROPIN
     Indication: Sarcoidosis
     Dosage: UNKNOWN
     Route: 058
  2. CORTICOTROPIN [Suspect]
     Active Substance: CORTICOTROPIN
     Indication: Pulmonary sarcoidosis
     Dosage: 80 UNITS PER ML
     Route: 058
  3. ASPIRIN [Concomitant]
     Active Substance: ASPIRIN
     Dosage: UNKNOWN
  4. XANAX [Concomitant]
     Active Substance: ALPRAZOLAM

REACTIONS (8)
  - Musculoskeletal discomfort [Unknown]
  - Psychomotor hyperactivity [Unknown]
  - Agitation [Not Recovered/Not Resolved]
  - Contusion [Unknown]
  - Fluid retention [Unknown]
  - Constipation [Unknown]
  - Blood pressure increased [Unknown]
  - Glycosylated haemoglobin increased [Unknown]
